FAERS Safety Report 6164241-8 (Version None)
Quarter: 2009Q2

REPORT INFORMATION
  Report Type: 
  Country: None (occurrence: None)
  Receive Date: 20090420
  Receipt Date: 20090405
  Transmission Date: 20091009
  Serious: Yes (Other)
  Sender: FDA-Public Use
  Company Number: GB-DEXPHARM-20090423

PATIENT
  Age: 78 Year
  Sex: Female

DRUGS (10)
  1. OMEPRAZOLE [Suspect]
     Indication: PROPHYLAXIS AGAINST GASTROINTESTINAL ULCER
     Dosage: 20 MG MILLGRAM(S)
     Route: 048
     Dates: start: 19990101, end: 20090220
  2. CALCICHEW [Suspect]
     Dosage: 1 DF DOSAGE FORM, 2 ORAL IN 1 DAY
  3. MAGNESIUM SUPPLEMENT [Suspect]
  4. ASPIRIN [Concomitant]
  5. THEOPHYLLINE [Concomitant]
  6. SYMBICORT [Concomitant]
  7. SPIRIVA [Concomitant]
  8. SIMVASTATIN [Concomitant]
  9. ISOSORBIDE MONONITRATE [Concomitant]
  10. FERROUS SULFATE TAB [Concomitant]

REACTIONS (8)
  - ATRIAL FIBRILLATION [None]
  - DIARRHOEA [None]
  - DYSPNOEA [None]
  - HYPOCALCAEMIA [None]
  - HYPOKALAEMIA [None]
  - HYPOMAGNESAEMIA [None]
  - PRODUCTIVE COUGH [None]
  - SPUTUM DISCOLOURED [None]
